FAERS Safety Report 9398971 (Version 1)
Quarter: 2013Q3

REPORT INFORMATION
  Report Type: Spontaneous
  Country: US (occurrence: US)
  Receive Date: 20130713
  Receipt Date: 20130713
  Transmission Date: 20140515
  Serious: No
  Sender: FDA-Public Use
  Company Number: US-TEVA-417940USA

PATIENT
  Sex: Female

DRUGS (7)
  1. PROAIR HFA [Suspect]
     Indication: BRONCHOSPASM
     Dates: start: 2011
  2. PROAIR HFA [Suspect]
     Indication: BRONCHIAL HYPERREACTIVITY
  3. PROAIR HFA [Suspect]
     Indication: ASTHMA
  4. PROAIR HFA [Suspect]
     Indication: THROAT TIGHTNESS
  5. ADVAIR [Concomitant]
     Indication: ASTHMA
  6. SINGULAIR [Concomitant]
     Indication: ASTHMA
  7. SPIRIVA [Concomitant]
     Indication: ASTHMA

REACTIONS (2)
  - Bronchospasm paradoxical [Unknown]
  - Feeling abnormal [Unknown]
